FAERS Safety Report 13494799 (Version 5)
Quarter: 2018Q1

REPORT INFORMATION
  Report Type: Spontaneous
  Country: US (occurrence: US)
  Receive Date: 20170428
  Receipt Date: 20180212
  Transmission Date: 20180508
  Serious: No
  Sender: FDA-Public Use
  Company Number: US-PFIZER INC-2017183028

PATIENT
  Age: 9 Year
  Sex: Male
  Weight: 33 kg

DRUGS (5)
  1. QUILLIVANT XR [Suspect]
     Active Substance: METHYLPHENIDATE HYDROCHLORIDE
     Dosage: 3.5 MG, 1X/DAY
     Dates: start: 201512
  2. QUILLIVANT XR [Suspect]
     Active Substance: METHYLPHENIDATE HYDROCHLORIDE
     Dosage: UNK
  3. QUILLIVANT XR [Suspect]
     Active Substance: METHYLPHENIDATE HYDROCHLORIDE
     Indication: ATTENTION DEFICIT/HYPERACTIVITY DISORDER
     Dosage: MORE THAN 3.0 ML AT ONCE
  4. QUILLIVANT XR [Suspect]
     Active Substance: METHYLPHENIDATE HYDROCHLORIDE
     Dosage: 2ML AT 7:15 AM AND 1.5ML AT 7:45 AM
  5. QUILLIVANT XR [Suspect]
     Active Substance: METHYLPHENIDATE HYDROCHLORIDE
     Dosage: UNK

REACTIONS (6)
  - Hypersensitivity [Unknown]
  - Wheezing [Unknown]
  - Sensation of foreign body [Unknown]
  - Throat irritation [Unknown]
  - Anxiety [Unknown]
  - Crying [Unknown]

NARRATIVE: CASE EVENT DATE: 201703
